FAERS Safety Report 6151650-6 (Version None)
Quarter: 2009Q2

REPORT INFORMATION
  Report Type: 
  Country: None (occurrence: None)
  Receive Date: 20090410
  Receipt Date: 20090331
  Transmission Date: 20091009
  Serious: Yes (Other)
  Sender: FDA-Public Use
  Company Number: BR-WYE-H08767409

PATIENT
  Sex: Male

DRUGS (22)
  1. SIROLIMUS [Suspect]
     Indication: PROPHYLAXIS AGAINST TRANSPLANT REJECTION
     Route: 048
     Dates: start: 20030524, end: 20030524
  2. SIROLIMUS [Suspect]
     Route: 048
     Dates: start: 20030525, end: 20030601
  3. SIROLIMUS [Suspect]
     Route: 048
     Dates: start: 20030602, end: 20030618
  4. METHYLPREDNISOLONE 4MG TAB [Suspect]
     Indication: PROPHYLAXIS AGAINST TRANSPLANT REJECTION
     Dosage: SINGLE DOSE: 500 MG
     Route: 042
     Dates: start: 20030524, end: 20030524
  5. METHYLPREDNISOLONE 4MG TAB [Suspect]
     Dosage: SINGLE DOSE: 250 MG
     Route: 042
     Dates: start: 20030525, end: 20030525
  6. METHYLPREDNISOLONE 4MG TAB [Suspect]
     Dosage: SINGLE DOSE: 125 MG
     Route: 042
     Dates: start: 20030526, end: 20030526
  7. METHYLPREDNISOLONE 4MG TAB [Suspect]
     Route: 042
     Dates: start: 20030606, end: 20030608
  8. PREDNISONE [Suspect]
     Indication: PROPHYLAXIS AGAINST TRANSPLANT REJECTION
     Route: 048
     Dates: start: 20030526, end: 20030611
  9. PREDNISONE [Suspect]
     Route: 048
     Dates: start: 20030612
  10. MYCOPHENOLATE MOFETIL [Suspect]
     Indication: PROPHYLAXIS AGAINST TRANSPLANT REJECTION
     Route: 048
     Dates: start: 20030524, end: 20030611
  11. MYCOPHENOLATE MOFETIL [Suspect]
     Route: 048
     Dates: start: 20030612, end: 20030613
  12. ACETYLSALICYLIC ACID SRT [Concomitant]
     Dosage: UNSPECIFIED
     Dates: start: 20030527, end: 20040612
  13. SULFAMETHOXAZOLE AND TRIMETHOPRIM [Concomitant]
     Dosage: UNSPECIFIED
     Dates: start: 20030527
  14. AMLODIPINE BESYLATE [Concomitant]
     Dosage: UNSPECIFIED
     Dates: start: 20030526, end: 20030614
  15. OMEPRAZOLE [Concomitant]
     Dosage: UNSPECIFIED
     Dates: start: 20030524
  16. ALBENDAZOLE [Concomitant]
     Dosage: UNSPECIFIED
     Dates: start: 20030524
  17. AMIKACIN [Concomitant]
     Dosage: UNSPECIFIED
     Dates: start: 20030524
  18. AMPICILLIN [Concomitant]
     Dosage: UNSPECIFIED
     Dates: start: 20030524
  19. OXACILLIN [Concomitant]
     Dosage: UNSPECIFIED
     Dates: start: 20030524
  20. DACLIZUMAB [Suspect]
     Indication: PROPHYLAXIS AGAINST TRANSPLANT REJECTION
     Dosage: SINGLE DOSE: 100 MG
     Route: 042
     Dates: start: 20030524, end: 20030524
  21. DACLIZUMAB [Suspect]
     Route: 042
     Dates: start: 20030605
  22. NISTATIN [Concomitant]
     Dosage: UNSPECIFIED
     Dates: start: 20030526, end: 20030623

REACTIONS (1)
  - GASTROINTESTINAL HAEMORRHAGE [None]
